FAERS Safety Report 11365987 (Version 2)
Quarter: 2015Q4

REPORT INFORMATION
  Report Type: Spontaneous
  Country: US (occurrence: US)
  Receive Date: 20150811
  Receipt Date: 20151012
  Transmission Date: 20160304
  Serious: Yes (Hospitalization, Other)
  Sender: FDA-Public Use
  Company Number: US-MYLANLABS-2015M1025872

PATIENT

DRUGS (2)
  1. PANTOPRAZOLE SODIUM DELAYED-RELEASE TABLETS, USP [Suspect]
     Active Substance: PANTOPRAZOLE SODIUM
     Indication: HIATUS HERNIA
     Dosage: 40 UNK, UNK
     Route: 048
  2. PANTOPRAZOLE SODIUM DELAYED-RELEASE TABLETS, USP [Suspect]
     Active Substance: PANTOPRAZOLE SODIUM
     Indication: GASTROOESOPHAGEAL REFLUX DISEASE
     Dosage: 40 MG, BID
     Route: 048
     Dates: start: 201504, end: 20150704

REACTIONS (5)
  - Dehydration [Recovered/Resolved]
  - Renal failure [Not Recovered/Not Resolved]
  - Diarrhoea [Recovered/Resolved]
  - Haemoglobin decreased [Unknown]
  - Blood pressure decreased [Recovered/Resolved]

NARRATIVE: CASE EVENT DATE: 201506
